FAERS Safety Report 5425702-X (Version None)
Quarter: 2007Q3

REPORT INFORMATION
  Report Type: 
  Country: None (occurrence: None)
  Receive Date: 20070731
  Receipt Date: 20070331
  Transmission Date: 20080115
  Serious: No
  Sender: FDA-Public Use
  Company Number: 2007PV032752

PATIENT
  Age: 70 Year
  Sex: Male
  Weight: 131.5 kg

DRUGS (6)
  1. EXENATIDE(EXENATIDE) PEN,DISPOSABLE [Suspect]
     Indication: TYPE 2 DIABETES MELLITUS
     Dosage: 10 UG, 2/D, SUBCUTANEOUS; 5 UG, 2/D, SUBCUTANEOUS
     Route: 058
     Dates: start: 20050501, end: 20050601
  2. EXENATIDE(EXENATIDE) PEN,DISPOSABLE [Suspect]
     Indication: TYPE 2 DIABETES MELLITUS
     Dosage: 10 UG, 2/D, SUBCUTANEOUS; 5 UG, 2/D, SUBCUTANEOUS
     Route: 058
     Dates: start: 20050601
  3. LANTUS [Concomitant]
  4. PRANDIN (DEFLAZACORT) [Concomitant]
  5. AVANDIA [Concomitant]
  6. METFORMIN HCL [Concomitant]

REACTIONS (5)
  - DECREASED APPETITE [None]
  - NASOPHARYNGITIS [None]
  - NAUSEA [None]
  - ROAD TRAFFIC ACCIDENT [None]
  - WEIGHT DECREASED [None]
